FAERS Safety Report 17011965 (Version 12)
Quarter: 2020Q2

REPORT INFORMATION
  Report Type: Spontaneous
  Country: US (occurrence: US)
  Receive Date: 20191108
  Receipt Date: 20200513
  Transmission Date: 20200713
  Serious: Yes (Hospitalization, Other)
  Sender: FDA-Public Use
  Company Number: US-PFIZER INC-2019174531

PATIENT
  Age: 91 Year
  Sex: Female
  Weight: 47 kg

DRUGS (4)
  1. TOVIAZ [Suspect]
     Active Substance: FESOTERODINE FUMARATE
     Indication: URINARY INCONTINENCE
  2. TOVIAZ [Suspect]
     Active Substance: FESOTERODINE FUMARATE
     Indication: INCONTINENCE
     Dosage: 8 MG, UNK
  3. TOVIAZ [Suspect]
     Active Substance: FESOTERODINE FUMARATE
     Indication: CHRONIC KIDNEY DISEASE
     Dosage: 4 MG, DAILY
     Route: 048
     Dates: end: 20200430
  4. TROSPIUM [Suspect]
     Active Substance: TROSPIUM
     Dosage: UNK

REACTIONS (10)
  - Gait disturbance [Unknown]
  - Mental disorder [Unknown]
  - Hypersensitivity [Recovered/Resolved]
  - Dysphonia [Recovered/Resolved]
  - Pain [Unknown]
  - Loss of personal independence in daily activities [Unknown]
  - Head injury [Recovered/Resolved]
  - Drug ineffective [Unknown]
  - Feeling abnormal [Unknown]
  - Spinal disorder [Unknown]
